FAERS Safety Report 5593871-7 (Version None)
Quarter: 2008Q1

REPORT INFORMATION
  Report Type: 
  Country: None (occurrence: None)
  Receive Date: 20080116
  Receipt Date: 20080110
  Transmission Date: 20080703
  Serious: Yes (Other)
  Sender: FDA-Public Use
  Company Number: US-BOEHRINGER INGELHEIM PHARMACEUTICALS, INC.-2007-BP-26885BP

PATIENT
  Sex: Female

DRUGS (4)
  1. SPIRIVA [Suspect]
     Indication: CHRONIC OBSTRUCTIVE PULMONARY DISEASE
     Dates: start: 20040101
  2. SPIRIVA [Suspect]
     Indication: DYSPNOEA
  3. DUONEB [Concomitant]
  4. PULMICORT [Concomitant]

REACTIONS (7)
  - ASTHENOPIA [None]
  - EYE DISCHARGE [None]
  - EYE IRRITATION [None]
  - LACRIMATION INCREASED [None]
  - LUNG NEOPLASM MALIGNANT [None]
  - MACULAR DEGENERATION [None]
  - VISUAL DISTURBANCE [None]
